FAERS Safety Report 9821106 (Version 1)
Quarter: 2014Q1

REPORT INFORMATION
  Report Type: Spontaneous
  Country: US (occurrence: None)
  Receive Date: 20140115
  Receipt Date: 20140115
  Transmission Date: 20141002
  Serious: Yes (Death)
  Sender: FDA-Public Use
  Company Number: None

PATIENT
  Age: 56 Year
  Sex: Female
  Weight: 66 kg

DRUGS (10)
  1. GEMCITABINE [Suspect]
     Indication: BREAST CANCER METASTATIC
     Route: 042
     Dates: start: 20130711
  2. ALOXI [Concomitant]
  3. DECADRON [Concomitant]
  4. PARAPLATIN [Concomitant]
  5. AMBIEN [Concomitant]
  6. MULTIVITAMIN [Concomitant]
  7. VITAMIN D [Concomitant]
  8. XGEVA [Concomitant]
  9. MELATONIN [Concomitant]
  10. OXYCODONE [Concomitant]

REACTIONS (2)
  - Neutropenia [None]
  - Cholestasis [None]
